FAERS Safety Report 14348114 (Version 11)
Quarter: 2020Q1

REPORT INFORMATION
  Report Type: Spontaneous
  Country: CA (occurrence: CA)
  Receive Date: 20180103
  Receipt Date: 20200327
  Transmission Date: 20200409
  Serious: Yes (Other)
  Sender: FDA-Public Use
  Company Number: CA-PFIZER INC-2017518095

PATIENT
  Age: 10 Year
  Sex: Female
  Weight: 33.2 kg

DRUGS (11)
  1. GENOTROPIN [Suspect]
     Active Substance: SOMATROPIN
     Indication: TURNER^S SYNDROME
     Dosage: 1.6 MG, DAILY 6 TIMES A WEEK
     Route: 058
     Dates: start: 20161208, end: 201712
  2. GENOTROPIN [Suspect]
     Active Substance: SOMATROPIN
     Dosage: 1.8 MG, DAILY 6 TIMES A WEEK
     Route: 058
     Dates: start: 2017, end: 2017
  3. GENOTROPIN [Suspect]
     Active Substance: SOMATROPIN
     Dosage: 2.0 MG, DAILY 6 TIMES A WEEK
     Route: 058
     Dates: start: 2018
  4. GENOTROPIN [Suspect]
     Active Substance: SOMATROPIN
     Dosage: 1.4 MG, DAILY 6 TIMES A WEEK
     Route: 058
     Dates: start: 2018, end: 2018
  5. GENOTROPIN [Suspect]
     Active Substance: SOMATROPIN
     Dosage: 1.8 MG, DAILY 6 TIMES A WEEK
     Route: 058
     Dates: start: 2018, end: 2018
  6. GENOTROPIN [Suspect]
     Active Substance: SOMATROPIN
     Dosage: 2.0 MG, DAILY 6 TIMES A WEEK
     Route: 058
     Dates: start: 2017, end: 201712
  7. GENOTROPIN [Suspect]
     Active Substance: SOMATROPIN
     Dosage: 0.4 MG, DAILY 6 TIMES A WEEK
     Route: 058
     Dates: start: 2017, end: 201712
  8. GENOTROPIN [Suspect]
     Active Substance: SOMATROPIN
     Dosage: 1.2 MG, DAILY 6 TIMES A WEEK
     Route: 058
     Dates: start: 2018, end: 2018
  9. GENOTROPIN [Suspect]
     Active Substance: SOMATROPIN
     Dosage: 2.0 MG, DAILY 7 TIMES A WEEK
     Route: 058
     Dates: start: 201807
  10. GENOTROPIN [Suspect]
     Active Substance: SOMATROPIN
     Dosage: 1.6 MG, DAILY 6 TIMES A WEEK
     Route: 058
     Dates: start: 2018, end: 2018
  11. ACETAZOLAMIDE. [Concomitant]
     Active Substance: ACETAZOLAMIDE
     Indication: SWELLING
     Dosage: UNK

REACTIONS (14)
  - Abdominal pain [Unknown]
  - Headache [Not Recovered/Not Resolved]
  - Initial insomnia [Unknown]
  - Fall [Unknown]
  - Idiopathic intracranial hypertension [Not Recovered/Not Resolved]
  - Forearm fracture [Unknown]
  - Coeliac disease [Unknown]
  - Snoring [Unknown]
  - Eye disorder [Unknown]
  - Intraocular pressure increased [Not Recovered/Not Resolved]
  - Weight decreased [Unknown]
  - Insomnia [Recovered/Resolved]
  - Swelling [Unknown]
  - Weight increased [Unknown]

NARRATIVE: CASE EVENT DATE: 201712
